FAERS Safety Report 17501800 (Version 3)
Quarter: 2022Q1

REPORT INFORMATION
  Report Type: Spontaneous
  Country: US (occurrence: US)
  Receive Date: 20200305
  Receipt Date: 20220315
  Transmission Date: 20220423
  Serious: No
  Sender: FDA-Public Use
  Company Number: US-PFIZER INC-2020098477

PATIENT
  Age: 71 Year
  Sex: Female

DRUGS (1)
  1. XELJANZ XR [Suspect]
     Active Substance: TOFACITINIB CITRATE
     Dosage: 11 MG

REACTIONS (3)
  - Nervousness [Unknown]
  - Hypotension [Unknown]
  - Herpes zoster [Unknown]
